FAERS Safety Report 18675986 (Version 2)
Quarter: 2021Q1

REPORT INFORMATION
  Report Type: Report from Study
  Country: US (occurrence: US)
  Receive Date: 20201229
  Receipt Date: 20210127
  Transmission Date: 20210419
  Serious: Yes (Hospitalization, Other)
  Sender: FDA-Public Use
  Company Number: US-ACADIA PHARMACEUTICALS INC.-ACA-2020-PIM-004128

PATIENT
  Sex: Male

DRUGS (17)
  1. DUOPA [Concomitant]
     Active Substance: CARBIDOPA\LEVODOPA
  2. LASIX [Concomitant]
     Active Substance: FUROSEMIDE
  3. COENZYME Q10 [Concomitant]
     Active Substance: DIETARY SUPPLEMENT\UBIDECARENONE
  4. ASPIRIN (E.C.) [Concomitant]
     Active Substance: ASPIRIN
  5. BETA CAROTENE. [Concomitant]
     Active Substance: BETA CAROTENE
  6. VITAMIN B COMPLEX [Concomitant]
     Active Substance: CYANOCOBALAMIN\DEXPANTHENOL\NIACINAMIDE\PYRIDOXINE HYDROCHLORIDE\RIBOFLAVIN 5^-PHOSPHATE SODIUM\THIAMINE HYDROCHLORIDE\VITAMIN B COMPLEX
  7. VITAMIN D3 [Concomitant]
     Active Substance: CHOLECALCIFEROL
  8. AMOXICILLIN. [Concomitant]
     Active Substance: AMOXICILLIN
  9. STOOL SOFTENER (DOCUSATE) [Concomitant]
     Active Substance: DOCUSATE
  10. OMEGA?3 [DOCOSAHEXAENOIC ACID;EICOSAPENTAENOIC ACID] [Concomitant]
     Active Substance: DOCONEXENT\ICOSAPENT
  11. RYTARY [Concomitant]
     Active Substance: CARBIDOPA\LEVODOPA
  12. NUPLAZID [Suspect]
     Active Substance: PIMAVANSERIN TARTRATE
     Indication: PARKINSON^S DISEASE
     Dosage: 34 MILLIGRAM, QD
     Route: 048
     Dates: start: 202012
  13. NUPLAZID [Suspect]
     Active Substance: PIMAVANSERIN TARTRATE
     Indication: DELUSION
  14. VITAMIN C [Concomitant]
     Active Substance: ASCORBIC ACID
  15. TAURINE [Concomitant]
     Active Substance: TAURINE
  16. NYSTATIN. [Concomitant]
     Active Substance: NYSTATIN
  17. SYNTHROID [Concomitant]
     Active Substance: LEVOTHYROXINE SODIUM

REACTIONS (2)
  - Gastrostomy tube site complication [Unknown]
  - Faecaloma [Unknown]
